FAERS Safety Report 10847292 (Version 2)
Quarter: 2015Q1

REPORT INFORMATION
  Report Type: Spontaneous
  Country: US (occurrence: US)
  Receive Date: 20150220
  Receipt Date: 20150226
  Transmission Date: 20150721
  Serious: No
  Sender: FDA-Public Use
  Company Number: US-PFIZER INC-2015063415

PATIENT
  Age: 63 Year
  Sex: Female
  Weight: 75 kg

DRUGS (17)
  1. VITAMIN B12 [Concomitant]
     Active Substance: CYANOCOBALAMIN
     Dosage: 1000 ?G, DAILY (2 TABS)
     Route: 048
  2. AROMASIN [Suspect]
     Active Substance: EXEMESTANE
     Indication: BREAST CANCER
     Dosage: 25 MG, 1X/DAY
     Route: 048
  3. MEVACOR [Concomitant]
     Active Substance: LOVASTATIN
     Dosage: 10 MG, 1X/DAY
     Route: 048
  4. FOLVITE [Concomitant]
     Active Substance: FOLIC ACID
     Dosage: 400 ?G, 1X/DAY
     Route: 048
  5. FLONASE [Concomitant]
     Active Substance: FLUTICASONE PROPIONATE
     Dosage: 50 ?G, DAILY
     Route: 045
  6. PRINZIDE ZESTORETIC [Concomitant]
     Dosage: UNK ( LISINOPRIL-10,HYDROCHLOROTHIAZIDE-12.5)
  7. PROCARDIA XL [Suspect]
     Active Substance: NIFEDIPINE
     Dosage: 30 MG, 1X/DAY (24 HR TABLET)
  8. VITAMIN D3 [Concomitant]
     Active Substance: CHOLECALCIFEROL
     Dosage: UNK UNK, 1X/DAY
     Route: 048
  9. ECOTRIN [Concomitant]
     Active Substance: ASPIRIN
     Dosage: 81 MG, AS NEEDED
     Route: 048
  10. ACETAMINOPHEN. [Concomitant]
     Active Substance: ACETAMINOPHEN
     Dosage: 500 MG, AS NEEDED
     Route: 048
  11. COQ10 [Concomitant]
     Active Substance: UBIDECARENONE
     Dosage: 1 DF, DAILY
     Route: 048
  12. ADVIL ORAL [Concomitant]
     Dosage: UNK
     Route: 048
  13. PLAVIX [Concomitant]
     Active Substance: CLOPIDOGREL BISULFATE
     Dosage: 75 MG, 1X/DAY
     Route: 048
  14. CALCIUM + VIT D [Concomitant]
     Active Substance: CALCIUM\VITAMIN D
     Dosage: 1-2 TABLETS, DAILY
     Route: 048
  15. ALLEGRA-D 24 [Concomitant]
     Dosage: 180-240MG PER 24HR (FEXOFENADINE 180 MG, PSEUDOEPHEDRINE 240 MG)
  16. ZESTORETIC [Concomitant]
     Active Substance: HYDROCHLOROTHIAZIDE\LISINOPRIL
     Dosage: 10-12.5 MG PER TABLET
  17. HYZAAR- 50 [Concomitant]
     Dosage: 1 DF, DAILY
     Route: 048

REACTIONS (3)
  - Musculoskeletal stiffness [Unknown]
  - Skin disorder [Unknown]
  - Arthralgia [Unknown]
